FAERS Safety Report 21506132 (Version 6)
Quarter: 2023Q4

REPORT INFORMATION
  Report Type: Spontaneous
  Country: US (occurrence: US)
  Receive Date: 20221026
  Receipt Date: 20231030
  Transmission Date: 20240110
  Serious: No
  Sender: FDA-Public Use
  Company Number: US-PHARMAESSENTIA CORPORATION-US-2022-PEC-000838

PATIENT
  Sex: Female

DRUGS (3)
  1. BESREMI [Suspect]
     Active Substance: ROPEGINTERFERON ALFA-2B-NJFT
     Indication: Polycythaemia vera
     Dosage: 100 MCG, Q2W
     Route: 058
     Dates: start: 20220915
  2. BESREMI [Suspect]
     Active Substance: ROPEGINTERFERON ALFA-2B-NJFT
     Dosage: 150 MCG, Q2W
     Route: 058
  3. BESREMI [Suspect]
     Active Substance: ROPEGINTERFERON ALFA-2B-NJFT
     Dosage: 300 MCG, Q2W
     Route: 058

REACTIONS (13)
  - Emotional disorder [Recovered/Resolved]
  - Red blood cell count increased [Recovered/Resolved]
  - Rib fracture [Recovered/Resolved]
  - Haematocrit abnormal [Recovered/Resolved]
  - Hepatic enzyme increased [Unknown]
  - Nasopharyngitis [Recovered/Resolved]
  - Hypertension [Recovered/Resolved]
  - Migraine with aura [Recovered/Resolved]
  - Pruritus [Unknown]
  - White blood cell count decreased [Recovered/Resolved]
  - Injection site bruising [Unknown]
  - Alopecia [Not Recovered/Not Resolved]
  - Cough [Recovered/Resolved]
